FAERS Safety Report 8862817 (Version 1)
Quarter: 2012Q4

REPORT INFORMATION
  Report Type: 
  Country: FR (occurrence: FR)
  Receive Date: 20121026
  Receipt Date: 20121026
  Transmission Date: 20130627
  Serious: No
  Sender: FDA-Public Use
  Company Number: FR-JNJFOC-20121012443

PATIENT
  Age: 88 Year
  Sex: Female

DRUGS (2)
  1. DUROGESIC [Suspect]
     Indication: PRODUCT USED FOR UNKNOWN INDICATION
     Route: 062
     Dates: start: 20121016
  2. UNKNOWN MEDICATION [Concomitant]
     Route: 065

REACTIONS (2)
  - Inappropriate schedule of drug administration [Unknown]
  - Therapy cessation [Unknown]
